FAERS Safety Report 12425796 (Version 3)
Quarter: 2016Q2

REPORT INFORMATION
  Report Type: Report from Study
  Country: US (occurrence: US)
  Receive Date: 20160601
  Receipt Date: 20160629
  Transmission Date: 20160815
  Serious: Yes (Hospitalization, Other)
  Sender: FDA-Public Use
  Company Number: US-AMGEN-USASP2016067110

PATIENT
  Age: 81 Year
  Sex: Female

DRUGS (3)
  1. ENBREL [Suspect]
     Active Substance: ETANERCEPT
     Indication: PSORIASIS
     Dosage: 50 MG, 2 TIMES/WK
     Route: 065
     Dates: start: 20050205
  2. ENBREL [Suspect]
     Active Substance: ETANERCEPT
     Indication: PSORIATIC ARTHROPATHY
     Dosage: UNK
     Route: 065
  3. HUMIRA [Suspect]
     Active Substance: ADALIMUMAB
     Indication: PRODUCT USED FOR UNKNOWN INDICATION
     Route: 065

REACTIONS (12)
  - Eye haemorrhage [Unknown]
  - Arthritis [Recovered/Resolved]
  - Diverticulitis [Unknown]
  - Dizziness [Unknown]
  - Blood cholesterol [Unknown]
  - Chronic obstructive pulmonary disease [Unknown]
  - Eye disorder [Unknown]
  - Intestinal perforation [Unknown]
  - Drug effect decreased [Unknown]
  - Mobility decreased [Recovering/Resolving]
  - Diabetes mellitus [Unknown]
  - Cardiac operation [Unknown]

NARRATIVE: CASE EVENT DATE: 2006
